FAERS Safety Report 8465701-7 (Version None)
Quarter: 2012Q2

REPORT INFORMATION
  Report Type: 
  Country: None (occurrence: None)
  Receive Date: 20120620
  Receipt Date: 20120620
  Transmission Date: 20120825
  Serious: No
  Sender: FDA-Public Use
  Company Number: None

PATIENT
  Age: 62 Year
  Sex: Male
  Weight: 87.9978 kg

DRUGS (1)
  1. DOXYCYCLINE HYCLATE [Suspect]
     Dosage: 1 TABLET EVERY 48 HRS
     Dates: start: 20120604, end: 20120606

REACTIONS (5)
  - ARTHRALGIA [None]
  - PAIN [None]
  - PRURITUS [None]
  - BURNING SENSATION [None]
  - BLISTER [None]
